FAERS Safety Report 6211370-6 (Version None)
Quarter: 2009Q2

REPORT INFORMATION
  Report Type: 
  Country: None (occurrence: None)
  Receive Date: 20090602
  Receipt Date: 20090529
  Transmission Date: 20091009
  Serious: Yes (Hospitalization)
  Sender: FDA-Public Use
  Company Number: FR-RB-016213-09

PATIENT
  Age: 28 Year
  Sex: Female

DRUGS (1)
  1. SUBUTEX [Suspect]
     Route: 060

REACTIONS (1)
  - SCHIZOPHRENIA [None]
